FAERS Safety Report 8431874-5 (Version None)
Quarter: 2012Q2

REPORT INFORMATION
  Report Type: 
  Country: None (occurrence: None)
  Receive Date: 20120613
  Receipt Date: 20120604
  Transmission Date: 20120825
  Serious: Yes (Death)
  Sender: FDA-Public Use
  Company Number: US-CUBIST-2012S1000480

PATIENT

DRUGS (5)
  1. CUBICIN [Suspect]
     Indication: OSTEOMYELITIS CHRONIC
  2. RIFAMPIN [Suspect]
     Indication: PRODUCT USED FOR UNKNOWN INDICATION
  3. TRIMETHOPRIM + SULFAMETHOXAZOLE [Suspect]
     Indication: OSTEOMYELITIS CHRONIC
  4. TRIMETHOPRIM + SULFAMETHOXAZOLE [Suspect]
     Indication: BACTERAEMIA
  5. CUBICIN [Suspect]
     Indication: BACTERAEMIA

REACTIONS (2)
  - DEATH [None]
  - BLOOD CREATININE INCREASED [None]
